FAERS Safety Report 17948747 (Version 6)
Quarter: 2020Q3

REPORT INFORMATION
  Report Type: Spontaneous
  Country: JP (occurrence: JP)
  Receive Date: 20200626
  Receipt Date: 20200929
  Transmission Date: 20201103
  Serious: Yes (Death, Life-Threatening, Hospitalization, Other)
  Sender: FDA-Public Use
  Company Number: JP-ASTELLAS-2020JP006610

PATIENT
  Age: 72 Year
  Sex: Female
  Weight: 37 kg

DRUGS (10)
  1. LINEZOLID. [Concomitant]
     Active Substance: LINEZOLID
     Indication: SEPSIS
     Route: 041
     Dates: start: 20200507, end: 20200518
  2. CYTARABINE. [Concomitant]
     Active Substance: CYTARABINE
     Indication: PRODUCT USED FOR UNKNOWN INDICATION
     Dosage: UNK UNK, UNKNOWN FREQ.
     Route: 065
  3. MAXIPIME [Concomitant]
     Active Substance: CEFEPIME HYDROCHLORIDE
     Indication: SEPSIS
     Dosage: 0.5 G, TWICE DAILY
     Route: 041
     Dates: start: 20200501, end: 20200504
  4. CIPROXAN?I.V. [Concomitant]
     Active Substance: CIPROFLOXACIN
     Indication: SEPSIS
     Route: 041
     Dates: start: 20200502, end: 20200504
  5. XOSPATA [Suspect]
     Active Substance: GILTERITINIB
     Indication: ACUTE MYELOID LEUKAEMIA REFRACTORY
     Route: 048
     Dates: start: 20200501, end: 20200509
  6. DAUNOMYCIN HYDROCHLORIDE [Concomitant]
     Active Substance: DAUNORUBICIN HYDROCHLORIDE
     Indication: PRODUCT USED FOR UNKNOWN INDICATION
     Dosage: UNK UNK, UNKNOWN FREQ.
     Route: 065
  7. CIPROXAN?I.V. [Concomitant]
     Active Substance: CIPROFLOXACIN
     Route: 041
     Dates: start: 20200508, end: 20200513
  8. MEROPENEM. [Concomitant]
     Active Substance: MEROPENEM
     Indication: SEPSIS
     Dosage: 0.5 G/DAY, 6 TIMES DAILY
     Route: 041
     Dates: start: 20200505, end: 20200506
  9. NEOPHAGEN?1 [Concomitant]
     Indication: LIVER DISORDER
     Dosage: UNK UNK, UNKNOWN FREQ.
     Route: 065
     Dates: start: 20200509
  10. ZYVOX [Concomitant]
     Active Substance: LINEZOLID
     Indication: PULMONARY MUCORMYCOSIS
     Dosage: UNK UNK, UNKNOWN FREQ.
     Route: 065
     Dates: start: 20200528

REACTIONS (6)
  - Pneumonia pseudomonal [Fatal]
  - Pulmonary mucormycosis [Fatal]
  - Multiple organ dysfunction syndrome [Fatal]
  - Sepsis [Fatal]
  - Acute myeloid leukaemia [Fatal]
  - Liver disorder [Not Recovered/Not Resolved]

NARRATIVE: CASE EVENT DATE: 20200504
